FAERS Safety Report 6966141-X (Version None)
Quarter: 2010Q3

REPORT INFORMATION
  Report Type: 
  Country: None (occurrence: None)
  Receive Date: 20100903
  Receipt Date: 20100830
  Transmission Date: 20110219
  Serious: Yes (Hospitalization)
  Sender: FDA-Public Use
  Company Number: PHHO2010JP10691

PATIENT

DRUGS (6)
  1. TASIGNA [Suspect]
     Indication: GASTROINTESTINAL STROMAL TUMOUR
     Dosage: 400 MG, BID
     Route: 048
     Dates: start: 20090519, end: 20100811
  2. TASIGNA [Suspect]
     Dosage: UNK
     Dates: start: 20100812, end: 20100826
  3. TASIGNA [Suspect]
     Dosage: 800MG DAILY
     Route: 048
     Dates: start: 20100827
  4. ALFAROL [Concomitant]
  5. MYTEAR [Concomitant]
  6. BIOFERMIN [Concomitant]

REACTIONS (5)
  - MALIGNANT TUMOUR EXCISION [None]
  - NEOPLASM MALIGNANT [None]
  - ORAL PAIN [None]
  - SQUAMOUS CELL CARCINOMA [None]
  - TUMOUR EXCISION [None]
